FAERS Safety Report 9696358 (Version 1)
Quarter: 2013Q4

REPORT INFORMATION
  Report Type: Spontaneous
  Country: US (occurrence: US)
  Receive Date: 20131119
  Receipt Date: 20131119
  Transmission Date: 20140711
  Serious: Yes (Other)
  Sender: FDA-Public Use
  Company Number: US-TEVA-420347USA

PATIENT
  Age: 59 Year
  Sex: Female

DRUGS (1)
  1. OXALIPLATIN INJECTION 50MG/10 ML+100MG/20ML [Suspect]

REACTIONS (2)
  - Neuropathy peripheral [Not Recovered/Not Resolved]
  - Paraesthesia [Not Recovered/Not Resolved]
